FAERS Safety Report 12508692 (Version 1)
Quarter: 2016Q2

REPORT INFORMATION
  Report Type: Report from Study
  Country: US (occurrence: US)
  Receive Date: 20160629
  Receipt Date: 20160629
  Transmission Date: 20160815
  Serious: Yes (Death, Hospitalization, Other)
  Sender: FDA-Public Use
  Company Number: US-BAYER-2016-004673

PATIENT
  Age: 37 Year
  Sex: Female
  Weight: 59.93 kg

DRUGS (11)
  1. ADEMPAS [Suspect]
     Active Substance: RIOCIGUAT
     Indication: PULMONARY ARTERIAL HYPERTENSION
     Dosage: 1 MG, UNK
     Route: 048
     Dates: start: 20160103
  2. ADEMPAS [Suspect]
     Active Substance: RIOCIGUAT
     Indication: PULMONARY ARTERIAL HYPERTENSION
     Dosage: 1 MG, TID
     Route: 048
  3. ADEMPAS [Suspect]
     Active Substance: RIOCIGUAT
     Indication: PULMONARY ARTERIAL HYPERTENSION
     Dosage: UNK
     Dates: start: 20151230
  4. REMODULIN [Concomitant]
     Active Substance: TREPROSTINIL
     Indication: PULMONARY ARTERIAL HYPERTENSION
     Dosage: 0.090 UG/KG, CONT
     Route: 058
     Dates: start: 20120220
  5. LETAIRIS [Concomitant]
     Active Substance: AMBRISENTAN
  6. REVATIO [Concomitant]
     Active Substance: SILDENAFIL CITRATE
     Dosage: UNK
  7. APIXABAN [Concomitant]
     Active Substance: APIXABAN
  8. ADEMPAS [Suspect]
     Active Substance: RIOCIGUAT
     Indication: PULMONARY ARTERIAL HYPERTENSION
     Dosage: 1 MG, TID
     Route: 048
  9. REMODULIN [Concomitant]
     Active Substance: TREPROSTINIL
     Indication: PULMONARY ARTERIAL HYPERTENSION
     Dosage: UNK
  10. TYVASO [Concomitant]
     Active Substance: TREPROSTINIL
  11. ADEMPAS [Suspect]
     Active Substance: RIOCIGUAT
     Indication: PULMONARY ARTERIAL HYPERTENSION
     Dosage: 0.5 MG, TID
     Route: 048

REACTIONS (17)
  - Death [Fatal]
  - Blood pressure decreased [Unknown]
  - Pulmonary arterial hypertension [None]
  - Cardiac failure [Not Recovered/Not Resolved]
  - Ascites [Not Recovered/Not Resolved]
  - Hypersomnia [None]
  - Hospitalisation [None]
  - Cardiac disorder [None]
  - Pericardial effusion [Not Recovered/Not Resolved]
  - Nausea [Not Recovered/Not Resolved]
  - Hospitalisation [None]
  - Ascites [Unknown]
  - Headache [Not Recovered/Not Resolved]
  - Body temperature increased [Unknown]
  - Dyspnoea [Unknown]
  - Dyspnoea [None]
  - Hospitalisation [None]

NARRATIVE: CASE EVENT DATE: 201601
